FAERS Safety Report 17417578 (Version 3)
Quarter: 2020Q1

REPORT INFORMATION
  Report Type: Report from Study
  Country: US (occurrence: US)
  Receive Date: 20200214
  Receipt Date: 20200313
  Transmission Date: 20200409
  Serious: No
  Sender: FDA-Public Use
  Company Number: NVSC2020US038295

PATIENT
  Sex: Female

DRUGS (3)
  1. GILENYA [Suspect]
     Active Substance: FINGOLIMOD HYDROCHLORIDE
     Indication: MULTIPLE SCLEROSIS
     Dosage: 0.5 MG
     Route: 048
  2. GILENYA [Suspect]
     Active Substance: FINGOLIMOD HYDROCHLORIDE
     Route: 048
  3. GILENYA [Suspect]
     Active Substance: FINGOLIMOD HYDROCHLORIDE
     Indication: PRODUCT USED FOR UNKNOWN INDICATION
     Dosage: UNK
     Route: 065

REACTIONS (10)
  - Oropharyngeal pain [Unknown]
  - Back pain [Unknown]
  - Decreased immune responsiveness [Unknown]
  - Lymphocyte count decreased [Unknown]
  - Influenza like illness [Unknown]
  - Alopecia [Unknown]
  - Headache [Unknown]
  - Sinusitis [Unknown]
  - Rhinorrhoea [Unknown]
  - Cough [Unknown]
